FAERS Safety Report 4695313-2 (Version None)
Quarter: 2005Q1

REPORT INFORMATION
  Report Type: 
  Country: None (occurrence: None)
  Receive Date: 20050128
  Receipt Date: 20050128
  Transmission Date: 20050727
  Serious: No
  Sender: FDA-Public Use
  Company Number: None

PATIENT
  Sex: Female
  Weight: 113.3993 kg

DRUGS (3)
  1. PROZAC [Suspect]
     Indication: DEPRESSION
     Dosage: PROZAC 20 MG BID PO
     Route: 048
  2. NITROSTAT [Suspect]
     Indication: CHEST PAIN
     Dosage: NITROSTAT 0.4MG PRN PO
     Route: 048
  3. NITROSTAT [Suspect]
     Indication: CORONARY ARTERY DISEASE
     Dosage: NITROSTAT 0.4MG PRN PO
     Route: 048

REACTIONS (4)
  - AGITATION [None]
  - ANXIETY [None]
  - CONDITION AGGRAVATED [None]
  - THERAPEUTIC RESPONSE UNEXPECTED WITH DRUG SUBSTITUTION [None]
